FAERS Safety Report 17516390 (Version 7)
Quarter: 2021Q1

REPORT INFORMATION
  Report Type: Spontaneous
  Country: US (occurrence: US)
  Receive Date: 20200309
  Receipt Date: 20210303
  Transmission Date: 20210419
  Serious: Yes (Other)
  Sender: FDA-Public Use
  Company Number: US-PFIZER INC-2020100361

PATIENT
  Age: 75 Year
  Sex: Female
  Weight: 52.15 kg

DRUGS (3)
  1. EUCRISA [Suspect]
     Active Substance: CRISABOROLE
     Dosage: UNK, 2X/DAY
  2. EUCRISA [Suspect]
     Active Substance: CRISABOROLE
     Indication: RASH
     Dosage: UNK , 1X/DAY (APPLY TOP ONCE A DAY TO AFFECTED AREA)
     Route: 061
  3. EUCRISA [Suspect]
     Active Substance: CRISABOROLE
     Indication: PRURITUS
     Dosage: UNK, 2X/DAY (APPLY TO AFFECTED AREAS TWICE DAILY)
     Route: 061

REACTIONS (6)
  - Drug ineffective for unapproved indication [Unknown]
  - Condition aggravated [Unknown]
  - Macular degeneration [Unknown]
  - Off label use [Unknown]
  - Food allergy [Unknown]
  - Product use issue [Unknown]
